FAERS Safety Report 17516408 (Version 1)
Quarter: 2020Q1

REPORT INFORMATION
  Report Type: Spontaneous
  Country: US (occurrence: US)
  Receive Date: 20200309
  Receipt Date: 20200309
  Transmission Date: 20200409
  Serious: No
  Sender: FDA-Public Use
  Company Number: US-PFIZER INC-2020100878

PATIENT
  Age: 56 Year
  Sex: Female

DRUGS (2)
  1. IBRANCE [Suspect]
     Active Substance: PALBOCICLIB
     Dosage: 125 MG, UNK
     Dates: start: 20200228
  2. FASLODEX [Suspect]
     Active Substance: FULVESTRANT
     Dosage: 500 MG, UNK (SHOTS 500 MG- 2 SHOTS)
     Dates: start: 20200228

REACTIONS (6)
  - Dyspnoea exertional [Unknown]
  - Dysuria [Unknown]
  - Dyschezia [Unknown]
  - Malaise [Unknown]
  - Abdominal pain [Recovered/Resolved]
  - Palpitations [Unknown]

NARRATIVE: CASE EVENT DATE: 20200303
